FAERS Safety Report 11142376 (Version 1)
Quarter: 2015Q2

REPORT INFORMATION
  Report Type: Spontaneous
  Country: US (occurrence: US)
  Receive Date: 20150527
  Receipt Date: 20150527
  Transmission Date: 20150821
  Serious: No
  Sender: FDA-Public Use
  Company Number: US-MALLINCKRODT-QSC-2014-0470

PATIENT
  Age: 7 Month
  Sex: Female
  Weight: 7.5 kg

DRUGS (6)
  1. VIGABATRIN [Concomitant]
     Active Substance: VIGABATRIN
     Dosage: 225 MG DISSOLVED IN 5 ML, BID
     Dates: start: 201305
  2. H.P. ACTHAR [Suspect]
     Active Substance: CORTICOTROPIN
     Indication: INFANTILE SPASMS
     Dosage: UNK
     Route: 030
     Dates: start: 201305, end: 2013
  3. LEVOTHROID [Concomitant]
     Active Substance: LEVOTHYROXINE SODIUM
     Dosage: 0.025 MG, QD
  4. H.P. ACTHAR [Suspect]
     Active Substance: CORTICOTROPIN
     Dosage: UNK
     Dates: start: 20130816, end: 20131127
  5. LEVETIRACETAM. [Concomitant]
     Active Substance: LEVETIRACETAM
     Dosage: 150 MG, BID AND WEAN 50 MG BID QWEEK TO STOP
     Dates: start: 201305
  6. NEXIUM [Concomitant]
     Active Substance: ESOMEPRAZOLE MAGNESIUM
     Dosage: 10 MG, BID

REACTIONS (2)
  - Infantile spasms [Recovered/Resolved]
  - Blood pressure increased [Unknown]

NARRATIVE: CASE EVENT DATE: 201306
